FAERS Safety Report 4647037-5 (Version None)
Quarter: 2005Q2

REPORT INFORMATION
  Report Type: 
  Country: None (occurrence: None)
  Receive Date: 20050331
  Receipt Date: 20050225
  Transmission Date: 20051028
  Serious: No
  Sender: FDA-Public Use
  Company Number: 05P-163-0289513

PATIENT
  Age: 58 Year
  Sex: Female
  Weight: 73.0291 kg

DRUGS (16)
  1. HUMIRA [Suspect]
     Indication: RHEUMATOID ARTHRITIS
     Dosage: 40 MG, 1 IN 2 WK, SUBCUTANEOUS
     Route: 058
     Dates: start: 20041007
  2. PROPRANOLOL HYDROCHLORIDE [Concomitant]
  3. FLURAZEPAM [Concomitant]
  4. LEVOTHYROXINE SODIUM [Concomitant]
  5. FUROSEMIDE [Concomitant]
  6. CITALOPRAM HYDROBROMIDE [Concomitant]
  7. MELOXICAM [Concomitant]
  8. ATORVASTATIN CALCIUM [Concomitant]
  9. ASPIRIN [Concomitant]
  10. ESOMEPRAZOLE [Concomitant]
  11. CALCIUM GLUCONATE [Concomitant]
  12. FOLIC ACID [Concomitant]
  13. METHOTREXATE [Concomitant]
  14. FENTANYL [Concomitant]
  15. ALENDRONATE SODIUM [Concomitant]
  16. PREDNISONE [Suspect]

REACTIONS (3)
  - INJECTION SITE PRURITUS [None]
  - INJECTION SITE RASH [None]
  - INJECTION SITE URTICARIA [None]
